FAERS Safety Report 15786600 (Version 1)
Quarter: 2019Q1

REPORT INFORMATION
  Report Type: Spontaneous
  Country: US (occurrence: US)
  Receive Date: 20190103
  Receipt Date: 20190103
  Transmission Date: 20190417
  Serious: No
  Sender: FDA-Public Use
  Company Number: US-PURACAP PHARMACEUTICAL LLC-2017EPC02044

PATIENT
  Sex: Female

DRUGS (1)
  1. DOXYCYCLINE HYCLATE. [Suspect]
     Active Substance: DOXYCYCLINE HYCLATE
     Dosage: 200 MG, 1X/DAY
     Route: 048
     Dates: start: 20170206

REACTIONS (2)
  - Malaise [Unknown]
  - Food allergy [Unknown]

NARRATIVE: CASE EVENT DATE: 2017
